APPROVED DRUG PRODUCT: RALTEGRAVIR POTASSIUM
Active Ingredient: RALTEGRAVIR POTASSIUM
Strength: EQ 600MG BASE
Dosage Form/Route: TABLET;ORAL
Application: A217990 | Product #001 | TE Code: AB
Applicant: LUPIN LTD
Approved: May 6, 2025 | RLD: No | RS: No | Type: RX